FAERS Safety Report 8043064-9 (Version None)
Quarter: 2012Q1

REPORT INFORMATION
  Report Type: 
  Country: None (occurrence: None)
  Receive Date: 20120112
  Receipt Date: 20120110
  Transmission Date: 20120608
  Serious: Yes (Other)
  Sender: FDA-Public Use
  Company Number: US-PFIZER INC-2012007760

PATIENT
  Sex: Male
  Weight: 86.168 kg

DRUGS (6)
  1. NEURONTIN [Suspect]
     Indication: JOINT INJURY
  2. TEGRETOL [Concomitant]
     Dosage: UNK
  3. RISPERDAL [Concomitant]
     Dosage: UNK
  4. NEURONTIN [Suspect]
     Indication: NERVE INJURY
     Dosage: 600 MG, 3X/DAY
     Route: 048
     Dates: start: 20060101
  5. NEURONTIN [Suspect]
     Indication: BACK DISORDER
  6. IBUPROFEN (ADVIL) [Concomitant]
     Dosage: UNK

REACTIONS (1)
  - HIP FRACTURE [None]
